FAERS Safety Report 10063142 (Version 1)
Quarter: 2014Q2

REPORT INFORMATION
  Report Type: Spontaneous
  Country: CN (occurrence: CN)
  Receive Date: 20140407
  Receipt Date: 20140407
  Transmission Date: 20141212
  Serious: Yes (Hospitalization, Other)
  Sender: FDA-Public Use
  Company Number: CN-WATSON-2014-06346

PATIENT
  Age: 15 Year
  Sex: Female

DRUGS (5)
  1. VALPROIC ACID (UNKNOWN) [Suspect]
     Indication: BIPOLAR DISORDER
     Dosage: 500 MG, BID
     Route: 065
  2. VALPROIC ACID (UNKNOWN) [Suspect]
     Dosage: 400 MG, BID
     Route: 065
     Dates: start: 200804
  3. SERTRALINE [Concomitant]
     Indication: BIPOLAR DISORDER
     Dosage: 50 MG, DAILY
     Route: 065
  4. ALPRAZOLAM [Concomitant]
     Indication: BIPOLAR DISORDER
     Dosage: 0.4 MG, DAILY
     Route: 065
  5. OLANZAPINE [Concomitant]
     Indication: MANIA
     Dosage: 2.5 MG, UNK

REACTIONS (1)
  - Hyperammonaemic encephalopathy [Recovered/Resolved]
